FAERS Safety Report 6992697-7 (Version None)
Quarter: 2010Q3

REPORT INFORMATION
  Report Type: 
  Country: None (occurrence: None)
  Receive Date: 20100917
  Receipt Date: 20100913
  Transmission Date: 20110219
  Serious: Yes (Other)
  Sender: FDA-Public Use
  Company Number: US-MERCK-1009USA01797

PATIENT
  Age: 81 Year
  Sex: Female
  Weight: 74 kg

DRUGS (4)
  1. ZOCOR [Suspect]
     Route: 048
  2. METFORMIN HYDROCHLORIDE [Suspect]
     Indication: HYPERTENSION
     Route: 048
     Dates: start: 20100101
  3. INDAPAMIDE [Concomitant]
     Indication: FLUID RETENTION
     Route: 048
  4. LEVOTHYROXINE SODIUM [Concomitant]
     Indication: THYROID THERAPY
     Route: 048

REACTIONS (4)
  - ABDOMINAL DISCOMFORT [None]
  - DIZZINESS [None]
  - DRUG ADMINISTRATION ERROR [None]
  - WEIGHT DECREASED [None]
